FAERS Safety Report 7748560-7 (Version None)
Quarter: 2011Q3

REPORT INFORMATION
  Report Type: 
  Country: None (occurrence: None)
  Receive Date: 20110914
  Receipt Date: 20110906
  Transmission Date: 20111222
  Serious: No
  Sender: FDA-Public Use
  Company Number: US-BIOGENIDEC-2011BI034251

PATIENT
  Age: 54 Year
  Sex: Male

DRUGS (4)
  1. AVONEX [Concomitant]
     Indication: MULTIPLE SCLEROSIS
     Route: 030
  2. MEDICATIONS (NOS) [Concomitant]
  3. TYSABRI [Suspect]
     Indication: MULTIPLE SCLEROSIS
     Route: 042
     Dates: start: 20070105
  4. AVONEX [Concomitant]
     Route: 030
     Dates: start: 20060820

REACTIONS (1)
  - ABDOMINAL DISCOMFORT [None]
